FAERS Safety Report 9033597 (Version 1)
Quarter: 2013Q1

REPORT INFORMATION
  Report Type: Spontaneous
  Country: GB (occurrence: GB)
  Receive Date: 20130128
  Receipt Date: 20130128
  Transmission Date: 20140127
  Serious: Yes (Other)
  Sender: FDA-Public Use
  Company Number: GB-MYLANLABS-2013S1001154

PATIENT
  Age: 46 Year
  Sex: Male

DRUGS (1)
  1. LEVETIRACETAM [Suspect]
     Indication: EPILEPSY
     Route: 048
     Dates: start: 20090401

REACTIONS (4)
  - Asthma [Unknown]
  - Cough [Unknown]
  - Dysgeusia [Unknown]
  - Gastrooesophageal reflux disease [Unknown]
